FAERS Safety Report 4304039-6 (Version None)
Quarter: 2004Q1

REPORT INFORMATION
  Report Type: 
  Country: None (occurrence: None)
  Receive Date: 20040223
  Receipt Date: 20040110
  Transmission Date: 20041129
  Serious: No
  Sender: FDA-Public Use
  Company Number: PHEH2004US00731

PATIENT
  Age: 55 Year
  Sex: Female

DRUGS (4)
  1. ZELNORM [Suspect]
     Indication: IRRITABLE BOWEL SYNDROME
     Dosage: 2MG, ORAL; 2 MG, BID, ORAL
     Route: 048
     Dates: start: 20031201
  2. ESTRADIOL [Suspect]
     Dosage: 0.05 MG/DAY, TRANSDERMAL
     Route: 062
     Dates: start: 19990101
  3. PROMETRIUM [Concomitant]
  4. NEXIUM [Concomitant]

REACTIONS (3)
  - BREAST TENDERNESS [None]
  - DRUG INTERACTION [None]
  - GASTROOESOPHAGEAL REFLUX DISEASE [None]
